FAERS Safety Report 5080736-2 (Version None)
Quarter: 2006Q3

REPORT INFORMATION
  Report Type: 
  Country: None (occurrence: None)
  Receive Date: 20060809
  Receipt Date: 20060728
  Transmission Date: 20061208
  Serious: Yes (Hospitalization)
  Sender: FDA-Public Use
  Company Number: 2006093062

PATIENT
  Age: 55 Year
  Sex: Female

DRUGS (3)
  1. SULFASALAZINE [Suspect]
     Indication: DRUG USE FOR UNKNOWN INDICATION
     Dosage: 500 MG, ORAL
     Route: 048
  2. ZANTAC [Concomitant]
  3. INDOMETHACIN [Concomitant]

REACTIONS (1)
  - INTERSTITIAL LUNG DISEASE [None]
